FAERS Safety Report 21014780 (Version 3)
Quarter: 2023Q2

REPORT INFORMATION
  Report Type: Report from Study
  Country: US (occurrence: US)
  Receive Date: 20220628
  Receipt Date: 20230509
  Transmission Date: 20230721
  Serious: Yes (Other)
  Sender: FDA-Public Use
  Company Number: US-ABBVIE-22K-163-4444544-00

PATIENT
  Sex: Male

DRUGS (2)
  1. SKYRIZI [Suspect]
     Active Substance: RISANKIZUMAB-RZAA
     Indication: Psoriasis
     Route: 058
     Dates: start: 2019
  2. SKYRIZI [Suspect]
     Active Substance: RISANKIZUMAB-RZAA
     Route: 058
     Dates: start: 202009

REACTIONS (4)
  - Throat cancer [Not Recovered/Not Resolved]
  - Aphonia [Recovering/Resolving]
  - Oropharyngeal pain [Not Recovered/Not Resolved]
  - Radiation associated pain [Unknown]

NARRATIVE: CASE EVENT DATE: 20220101
